FAERS Safety Report 10601745 (Version 1)
Quarter: 2014Q4

REPORT INFORMATION
  Report Type: Spontaneous
  Country: US (occurrence: None)
  Receive Date: 20141120
  Receipt Date: 20141120
  Transmission Date: 20150529
  Serious: Yes (Hospitalization)
  Sender: FDA-Public Use
  Company Number: AEGR000767

PATIENT
  Age: 58 Year
  Sex: Female
  Weight: 93 kg

DRUGS (12)
  1. IMDUE (ISOSORBIDE MONONITRATE) [Concomitant]
  2. NITROGLYCERIN (GLYCERYL TRINITRATE) [Concomitant]
  3. AMLODIPINE (AMLODIPINE BESILATE) [Concomitant]
  4. CALCIUM CARBONATE. [Concomitant]
     Active Substance: CALCIUM CARBONATE
  5. JUXTAPID [Suspect]
     Active Substance: LOMITAPIDE MESYLATE
     Indication: TYPE IIA HYPERLIPIDAEMIA
     Dates: start: 20140514, end: 201409
  6. ZETIA [Concomitant]
     Active Substance: EZETIMIBE
  7. ASPIRIN (ACETYLSALICYLIC ACID) [Concomitant]
     Active Substance: ASPIRIN
  8. PLETAL [Concomitant]
     Active Substance: CILOSTAZOL
  9. NIASPAN (NICOTINIC ACID) [Concomitant]
  10. METOPROLOL SUCCINATE. [Concomitant]
     Active Substance: METOPROLOL SUCCINATE
  11. VITAMIN D (COLECALCIFEROL) [Concomitant]
  12. FISH OIL [Concomitant]
     Active Substance: FISH OIL

REACTIONS (5)
  - Angina unstable [None]
  - Coronary artery stenosis [None]
  - Wound secretion [None]
  - Drug dose omission [None]
  - Electrocardiogram abnormal [None]

NARRATIVE: CASE EVENT DATE: 20140910
